FAERS Safety Report 9209280 (Version 1)
Quarter: 2013Q2

REPORT INFORMATION
  Report Type: Spontaneous
  Country: US (occurrence: None)
  Receive Date: 20130403
  Receipt Date: 20130403
  Transmission Date: 20140414
  Serious: Yes (Other)
  Sender: FDA-Public Use
  Company Number: None

PATIENT
  Age: 40 Year
  Sex: Male
  Weight: 88.5 kg

DRUGS (1)
  1. RISPERIDONE [Suspect]
     Indication: AFFECTIVE DISORDER
     Route: 048
     Dates: start: 20121227, end: 20130102

REACTIONS (1)
  - Neutropenia [None]
